FAERS Safety Report 8292049-6 (Version None)
Quarter: 2012Q2

REPORT INFORMATION
  Report Type: 
  Country: None (occurrence: None)
  Receive Date: 20120417
  Receipt Date: 20120209
  Transmission Date: 20120825
  Serious: No
  Sender: FDA-Public Use
  Company Number: US-ASTRAZENECA-2011SE13435

PATIENT
  Age: 55 Year
  Sex: Female

DRUGS (2)
  1. NEXIUM [Suspect]
     Indication: GASTROOESOPHAGEAL REFLUX DISEASE
     Dosage: TOTAL DAILY DOSAGE 40MG,TWO TIMES A DAY
     Route: 048
     Dates: start: 20000101
  2. SEROQUEL XR [Suspect]
     Indication: SLEEP DISORDER
     Route: 048
     Dates: start: 20000101

REACTIONS (5)
  - DRUG DOSE OMISSION [None]
  - DRUG EFFECT DECREASED [None]
  - ABDOMINAL DISCOMFORT [None]
  - MALAISE [None]
  - VOMITING [None]
